FAERS Safety Report 9948975 (Version 1)
Quarter: 2014Q1

REPORT INFORMATION
  Report Type: Spontaneous
  Country: IT (occurrence: IT)
  Receive Date: 20140303
  Receipt Date: 20140303
  Transmission Date: 20141002
  Serious: Yes (Other)
  Sender: FDA-Public Use
  Company Number: IT-MYLANLABS-2014S1003940

PATIENT
  Age: 61 Year
  Sex: Male
  Weight: 83 kg

DRUGS (4)
  1. PACLITAXEL [Suspect]
     Indication: BLADDER NEOPLASM
     Route: 042
     Dates: start: 20140206, end: 20140217
  2. METFORAL [Concomitant]
     Indication: DIABETES MELLITUS
     Route: 048
  3. RAMIPRIL [Concomitant]
     Indication: ESSENTIAL HYPERTENSION
  4. REPAGLINIDE [Concomitant]
     Indication: DIABETES MELLITUS

REACTIONS (4)
  - Abdominal pain upper [Recovered/Resolved]
  - Dyspnoea [Recovered/Resolved]
  - Erythema [Recovered/Resolved]
  - Blood pressure abnormal [Recovered/Resolved]
